FAERS Safety Report 5864248-1 (Version None)
Quarter: 2008Q3

REPORT INFORMATION
  Report Type: 
  Country: None (occurrence: None)
  Receive Date: 20080829
  Receipt Date: 20080604
  Transmission Date: 20090109
  Serious: No
  Sender: FDA-Public Use
  Company Number: US-ABBOTT-08P-163-0455267-00

PATIENT
  Sex: Female

DRUGS (2)
  1. SIMCOR [Suspect]
     Indication: DIABETES MELLITUS
     Dosage: 500/20 MG DAILY
     Route: 048
     Dates: start: 20080508, end: 20080511
  2. SIMCOR [Suspect]
     Indication: BLOOD CHOLESTEROL INCREASED

REACTIONS (3)
  - ERYTHEMA [None]
  - FEELING HOT [None]
  - HEART RATE INCREASED [None]
